FAERS Safety Report 20790418 (Version 2)
Quarter: 2022Q2

REPORT INFORMATION
  Report Type: Spontaneous
  Country: US (occurrence: US)
  Receive Date: 20220505
  Receipt Date: 20220512
  Transmission Date: 20220721
  Serious: Yes (Death, Other)
  Sender: FDA-Public Use
  Company Number: US-PFIZER INC-202200639980

PATIENT
  Age: 36 Year
  Sex: Male

DRUGS (6)
  1. METRONIDAZOLE [Suspect]
     Active Substance: METRONIDAZOLE
     Dosage: UNK
  2. FLUCONAZOLE [Suspect]
     Active Substance: FLUCONAZOLE
     Dosage: UNK
  3. AMPHOTERICIN B [Suspect]
     Active Substance: AMPHOTERICIN B
     Dosage: UNK
  4. PENTAMIDINE ISETHIONATE [Suspect]
     Active Substance: PENTAMIDINE ISETHIONATE
     Dosage: UNK
  5. ITRACONAZOLE [Suspect]
     Active Substance: ITRACONAZOLE
     Indication: Acanthamoeba infection
     Dosage: UNK
  6. KETOCONAZOLE [Suspect]
     Active Substance: KETOCONAZOLE
     Indication: Acanthamoeba infection
     Dosage: UNK

REACTIONS (1)
  - Drug ineffective [Fatal]
